FAERS Safety Report 22864502 (Version 5)
Quarter: 2023Q4

REPORT INFORMATION
  Report Type: Spontaneous
  Country: US (occurrence: US)
  Receive Date: 20230825
  Receipt Date: 20231107
  Transmission Date: 20240110
  Serious: Yes (Hospitalization, Other)
  Sender: FDA-Public Use
  Company Number: US-AMGEN-USASP2023148682

PATIENT
  Age: 66 Year
  Sex: Male

DRUGS (3)
  1. TAVNEOS [Suspect]
     Active Substance: AVACOPAN
     Indication: Granulomatosis with polyangiitis
     Dosage: 30 MILLIGRAM, BID (TAVNEOS 10 MG CAPSULE | TAKE 3 CAPSULES (30 MG) BY MOUTH TWICE DAILY WITH FOOD)
     Route: 048
  2. TAVNEOS [Suspect]
     Active Substance: AVACOPAN
     Dosage: 30 MILLIGRAM, BID (TAVNEOS 10 MG CAPSULE | TAKE 3 CAPSULES (30 MG) BY MOUTH TWICE DAILY WITH FOOD)
     Route: 048
     Dates: start: 20230822
  3. TAVNEOS [Suspect]
     Active Substance: AVACOPAN
     Dosage: 30 MILLIGRAM, BID (TAKE 3 CAPSULES (30 MG) BY MOUTH TWICE DAILY WITH FOOD)
     Route: 048

REACTIONS (10)
  - Thrombosis [Unknown]
  - Abdominal discomfort [Unknown]
  - Feeling abnormal [Unknown]
  - Cough [Unknown]
  - Pruritus [Not Recovered/Not Resolved]
  - Myalgia [Unknown]
  - Diarrhoea [Unknown]
  - Fatigue [Unknown]
  - Rash [Not Recovered/Not Resolved]
  - Arthralgia [Not Recovered/Not Resolved]

NARRATIVE: CASE EVENT DATE: 20230101
